FAERS Safety Report 5941430-6 (Version None)
Quarter: 2008Q4

REPORT INFORMATION
  Report Type: 
  Country: None (occurrence: None)
  Receive Date: 20081103
  Receipt Date: 20081103
  Transmission Date: 20090506
  Serious: Yes (Other)
  Sender: FDA-Public Use
  Company Number: None

PATIENT
  Age: 48 Year
  Sex: Male
  Weight: 70 kg

DRUGS (1)
  1. GLUCAGON [Suspect]
     Indication: GASTROINTESTINAL OBSTRUCTION
     Dosage: 1MG ONCE IV
     Route: 042
     Dates: start: 20081102, end: 20081102

REACTIONS (1)
  - INJECTION SITE EXTRAVASATION [None]
